FAERS Safety Report 17399304 (Version 24)
Quarter: 2022Q2

REPORT INFORMATION
  Report Type: Report from Study
  Country: JP (occurrence: JP)
  Receive Date: 20200211
  Receipt Date: 20220519
  Transmission Date: 20220720
  Serious: Yes (Hospitalization, Other)
  Sender: FDA-Public Use
  Company Number: JP-BRISTOL-MYERS SQUIBB COMPANY-BMS-2019-123525

PATIENT
  Age: 55 Year
  Sex: Female
  Weight: 52.3 kg

DRUGS (8)
  1. YERVOY [Suspect]
     Active Substance: IPILIMUMAB
     Indication: Metastatic renal cell carcinoma
     Dosage: 1 MILLIGRAM/KILOGRAM, ONE TIME DOSE
     Route: 041
     Dates: start: 20191126, end: 20191126
  2. YERVOY [Suspect]
     Active Substance: IPILIMUMAB
     Dosage: 1 MILLIGRAM/KILOGRAM, ONE TIME DOSE
     Route: 041
     Dates: start: 20191223, end: 20191223
  3. YERVOY [Suspect]
     Active Substance: IPILIMUMAB
     Dosage: 1 MILLIGRAM/KILOGRAM, ONE TIME DOSE
     Route: 041
     Dates: start: 20200420, end: 20200420
  4. YERVOY [Suspect]
     Active Substance: IPILIMUMAB
     Dosage: 1 MILLIGRAM/KILOGRAM, ONE TIME DOSE
     Route: 041
     Dates: start: 20200518, end: 20200518
  5. OPDIVO [Suspect]
     Active Substance: NIVOLUMAB
     Indication: Metastatic renal cell carcinoma
     Dosage: 240 MILLIGRAM, ONE TIME DOSE
     Route: 041
     Dates: start: 20191126, end: 20191126
  6. OPDIVO [Suspect]
     Active Substance: NIVOLUMAB
     Dosage: 240 MILLIGRAM, ONE TIME DOSE
     Route: 041
     Dates: start: 20191223, end: 20191223
  7. OPDIVO [Suspect]
     Active Substance: NIVOLUMAB
     Dosage: 240 MILLIGRAM, ONE TIME DOSE
     Route: 041
     Dates: start: 20200420, end: 20200420
  8. OPDIVO [Suspect]
     Active Substance: NIVOLUMAB
     Dosage: 240 MILLIGRAM, ONE TIME DOSE
     Route: 041
     Dates: start: 20200518, end: 20200518

REACTIONS (19)
  - Hypothyroidism [Not Recovered/Not Resolved]
  - Upper respiratory tract inflammation [Recovered/Resolved]
  - Headache [Recovered/Resolved]
  - Nausea [Recovered/Resolved]
  - Hyponatraemia [Recovered/Resolved]
  - Decreased appetite [Recovered/Resolved]
  - Secondary adrenocortical insufficiency [Not Recovered/Not Resolved]
  - Hyperkalaemia [Recovered/Resolved]
  - Fatigue [Recovering/Resolving]
  - Hepatic function abnormal [Recovered/Resolved]
  - Abdominal discomfort [Recovered/Resolved]
  - Pruritus [Recovered/Resolved]
  - Constipation [Recovering/Resolving]
  - Hypozincaemia [Not Recovered/Not Resolved]
  - Stomatitis [Recovered/Resolved]
  - Diarrhoea [Recovered/Resolved]
  - Oedema [Recovered/Resolved]
  - Dry eye [Recovered/Resolved]
  - Thyroiditis chronic [Not Recovered/Not Resolved]

NARRATIVE: CASE EVENT DATE: 20191205
